FAERS Safety Report 7677347-9 (Version None)
Quarter: 2011Q3

REPORT INFORMATION
  Report Type: 
  Country: None (occurrence: None)
  Receive Date: 20110811
  Receipt Date: 20110729
  Transmission Date: 20111222
  Serious: Yes (Hospitalization)
  Sender: FDA-Public Use
  Company Number: JP-ELI_LILLY_AND_COMPANY-JP201107005510

PATIENT
  Age: 55 Year
  Sex: Male

DRUGS (2)
  1. LANSOPRAZOLE [Concomitant]
     Indication: GASTRIC ULCER HAEMORRHAGE
     Dosage: 15 MG, QD
     Dates: start: 20110401
  2. ZYPREXA [Suspect]
     Indication: SCHIZOPHRENIA
     Dosage: 10 MG, QD
     Route: 048

REACTIONS (4)
  - LIPID METABOLISM DISORDER [None]
  - LEG AMPUTATION [None]
  - GASTRIC ULCER HAEMORRHAGE [None]
  - ARTERIAL OCCLUSIVE DISEASE [None]
